FAERS Safety Report 13745232 (Version 1)
Quarter: 2017Q3

REPORT INFORMATION
  Report Type: Spontaneous
  Country: HU (occurrence: HU)
  Receive Date: 20170712
  Receipt Date: 20170712
  Transmission Date: 20171127
  Serious: Yes (Death)
  Sender: FDA-Public Use
  Company Number: HU-ROCHE-1960534

PATIENT
  Age: 64 Year
  Sex: Female

DRUGS (7)
  1. CO-ENALAPRIL [Concomitant]
     Active Substance: ENALAPRIL MALEATE\HYDROCHLOROTHIAZIDE
     Indication: PRODUCT USED FOR UNKNOWN INDICATION
     Route: 065
  2. ASA PROTECT PHARMAVIT [Concomitant]
     Indication: PERIPHERAL ARTERY STENT INSERTION
     Route: 048
     Dates: start: 2016
  3. LIPTRUZET [Concomitant]
     Active Substance: ATORVASTATIN CALCIUM\EZETIMIBE
     Route: 065
  4. CLOPIDOGREL [Concomitant]
     Active Substance: CLOPIDOGREL BISULFATE
     Indication: PERIPHERAL ARTERY STENT INSERTION
     Route: 048
     Dates: start: 2016
  5. ACTILYSE [Suspect]
     Active Substance: ALTEPLASE
     Dosage: INTRAVENOUS PERFUSOR
     Route: 042
     Dates: start: 20170616, end: 20170616
  6. NORTIVAN HCT [Concomitant]
     Indication: PRODUCT USED FOR UNKNOWN INDICATION
     Route: 065
  7. ACTILYSE [Suspect]
     Active Substance: ALTEPLASE
     Indication: HEMIPARESIS
     Dosage: INTRAVENOUS PERFUSOR
     Route: 042
     Dates: start: 20170616, end: 20170616

REACTIONS (1)
  - Basal ganglia haemorrhage [Fatal]

NARRATIVE: CASE EVENT DATE: 20170616
